FAERS Safety Report 8297794-4 (Version None)
Quarter: 2012Q2

REPORT INFORMATION
  Report Type: 
  Country: None (occurrence: None)
  Receive Date: 20120417
  Receipt Date: 20120409
  Transmission Date: 20120825
  Serious: Yes (Death)
  Sender: FDA-Public Use
  Company Number: UTC-015852

PATIENT
  Age: 59 Year
  Sex: Female
  Weight: 90.91 kg

DRUGS (4)
  1. TRACLEER [Concomitant]
  2. REMODULIN [Suspect]
     Indication: COR PULMONALE CHRONIC
     Dosage: 210.24 UG/KG (0.146 UG/KG, 1 IN 1 MIN), INTRAVENOUS
     Route: 042
     Dates: start: 20050112
  3. REMODULIN [Suspect]
     Indication: PULMONARY HYPERTENSION
     Dosage: 210.24 UG/KG (0.146 UG/KG, 1 IN 1 MIN), INTRAVENOUS
     Route: 042
     Dates: start: 20050112
  4. REVATIO [Concomitant]

REACTIONS (2)
  - DYSPNOEA [None]
  - CARDIAC ARREST [None]
